FAERS Safety Report 10137998 (Version 1)
Quarter: 2014Q2

REPORT INFORMATION
  Report Type: Report from Study
  Country: US (occurrence: US)
  Receive Date: 20140429
  Receipt Date: 20140429
  Transmission Date: 20141212
  Serious: Yes (Hospitalization)
  Sender: FDA-Public Use
  Company Number: US-SA-2014SA050715

PATIENT
  Sex: Male

DRUGS (2)
  1. LANTUS SOLOSTAR [Suspect]
     Indication: DIABETES MELLITUS
     Dosage: DOSE:50 UNIT(S)
     Route: 065
     Dates: start: 20120402
  2. SOLOSTAR [Concomitant]
     Dates: start: 20120402

REACTIONS (4)
  - Pneumonia [Unknown]
  - Nephropathy [Unknown]
  - Coma [Recovered/Resolved]
  - Ill-defined disorder [Unknown]
